FAERS Safety Report 7951998-6 (Version None)
Quarter: 2011Q4

REPORT INFORMATION
  Report Type: 
  Country: None (occurrence: None)
  Receive Date: 20111201
  Receipt Date: 20111128
  Transmission Date: 20120403
  Serious: Yes (Other)
  Sender: FDA-Public Use
  Company Number: US-PFIZER INC-2007025970

PATIENT
  Sex: Female
  Weight: 50.794 kg

DRUGS (16)
  1. CHANTIX [Suspect]
     Dosage: 0.5 MG, 2X/DAY
     Route: 048
     Dates: start: 20070317, end: 20070320
  2. XANAX [Concomitant]
     Indication: ANXIETY
     Dosage: 0.5 MG, AS NEEDED (UP TO FOUR TIMES A DAY)
     Route: 048
  3. PREMARIN [Concomitant]
     Dosage: UNK
  4. TRAZODONE HCL [Concomitant]
     Indication: SLEEP DISORDER
     Dosage: UNK
  5. CRESTOR [Concomitant]
     Indication: BLOOD CHOLESTEROL INCREASED
     Dosage: 10 MG, DAILY
     Route: 048
  6. CHANTIX [Suspect]
     Dosage: 0.5 MG, UNK
     Route: 048
  7. CADUET [Concomitant]
     Dosage: UNK
  8. AMLODIPINE BESILATE [Concomitant]
     Indication: HYPERTENSION
     Dosage: 5 MG, DAILY
     Route: 048
  9. LORTAB [Concomitant]
     Dosage: UNK
     Route: 048
  10. NEXIUM [Concomitant]
     Indication: GASTROOESOPHAGEAL REFLUX DISEASE
     Dosage: 40 MG, UNK
     Route: 048
  11. CHANTIX [Suspect]
     Dosage: 1 MG, UNK
     Dates: start: 20070321, end: 20070301
  12. CHANTIX [Suspect]
     Dosage: 1 MG, 2X/DAY
     Route: 048
     Dates: start: 20070301
  13. CHANTIX [Suspect]
     Dosage: 0.5 MG, DAILY
     Route: 048
  14. CHANTIX [Suspect]
     Dosage: 1 MG, UNK
     Route: 048
  15. CHANTIX [Suspect]
     Indication: SMOKING CESSATION THERAPY
     Dosage: 0.5 MG, 1X/DAY
     Dates: start: 20070314, end: 20070316
  16. OPANA [Concomitant]
     Indication: PAIN
     Dosage: UNK
     Route: 048

REACTIONS (15)
  - BRONCHITIS CHRONIC [None]
  - MENTAL DISORDER [None]
  - FLATULENCE [None]
  - CONSTIPATION [None]
  - ABNORMAL DREAMS [None]
  - EMPHYSEMA [None]
  - SLEEP TALKING [None]
  - MOOD ALTERED [None]
  - GASTROOESOPHAGEAL REFLUX DISEASE [None]
  - PERSONALITY CHANGE [None]
  - SLEEP DISORDER [None]
  - CHRONIC OBSTRUCTIVE PULMONARY DISEASE [None]
  - BLOOD CALCIUM INCREASED [None]
  - BLOOD POTASSIUM DECREASED [None]
  - FEELING ABNORMAL [None]
